FAERS Safety Report 5739761-8 (Version None)
Quarter: 2008Q2

REPORT INFORMATION
  Report Type: 
  Country: None (occurrence: None)
  Receive Date: 20080512
  Receipt Date: 20080512
  Transmission Date: 20081010
  Serious: No
  Sender: FDA-Public Use
  Company Number: None

PATIENT
  Age: 47 Year
  Sex: Female
  Weight: 60.782 kg

DRUGS (1)
  1. FACTIVE [Suspect]
     Dosage: ONCE DAILY
     Dates: start: 20080507, end: 20080508

REACTIONS (7)
  - BONE PAIN [None]
  - DIARRHOEA [None]
  - HEADACHE [None]
  - HEART RATE DECREASED [None]
  - HYPERHIDROSIS [None]
  - INSOMNIA [None]
  - MUSCULAR WEAKNESS [None]
